FAERS Safety Report 5591091-3 (Version None)
Quarter: 2008Q1

REPORT INFORMATION
  Report Type: 
  Country: None (occurrence: None)
  Receive Date: 20080115
  Receipt Date: 20080108
  Transmission Date: 20080703
  Serious: Yes (Hospitalization, Other)
  Sender: FDA-Public Use
  Company Number: PHEH2007US11677

PATIENT
  Sex: Female
  Weight: 88.435 kg

DRUGS (1)
  1. ZOMETA [Suspect]
     Indication: OSTEOPOROSIS
     Dosage: 4MG Q6MOS
     Route: 042
     Dates: start: 20061201, end: 20070901

REACTIONS (6)
  - ANGINA PECTORIS [None]
  - ARTERIOSPASM CORONARY [None]
  - CATHETERISATION CARDIAC [None]
  - CORONARY ARTERIAL STENT INSERTION [None]
  - CORONARY ARTERY DISEASE [None]
  - STENT OCCLUSION [None]
